FAERS Safety Report 4839377-1 (Version None)
Quarter: 2005Q4

REPORT INFORMATION
  Report Type: 
  Country: None (occurrence: None)
  Receive Date: 20051129
  Receipt Date: 20050209
  Transmission Date: 20060501
  Serious: No
  Sender: FDA-Public Use
  Company Number: 2005-00359

PATIENT
  Age: 56 Year
  Sex: Male
  Weight: 92.7 kg

DRUGS (1)
  1. BUPROPION HCL [Suspect]
     Dosage: 150MG TWICE PER DAY
     Route: 048
     Dates: start: 20050119

REACTIONS (3)
  - INSOMNIA [None]
  - NAUSEA [None]
  - NERVOUSNESS [None]
